FAERS Safety Report 6604470-X (Version None)
Quarter: 2010Q1

REPORT INFORMATION
  Report Type: 
  Country: None (occurrence: None)
  Receive Date: 20100226
  Receipt Date: 20091022
  Transmission Date: 20100710
  Serious: No
  Sender: FDA-Public Use
  Company Number: A0812981A

PATIENT
  Age: 13 Year
  Sex: Male

DRUGS (3)
  1. LAMICTAL CD [Suspect]
     Indication: BIPOLAR DISORDER
     Dosage: 200MG PER DAY
     Route: 048
     Dates: start: 20080101
  2. UNKNOWN MEDICATION [Concomitant]
  3. ZOLOFT [Concomitant]

REACTIONS (1)
  - ABDOMINAL DISCOMFORT [None]
